FAERS Safety Report 12418714 (Version 2)
Quarter: 2019Q3

REPORT INFORMATION
  Report Type: Spontaneous
  Country: NL (occurrence: NL)
  Receive Date: 20160531
  Receipt Date: 20190911
  Transmission Date: 20191004
  Serious: Yes (Hospitalization)
  Sender: FDA-Public Use
  Company Number: NL-UCBSA-2016019701

PATIENT
  Age: 0 Year
  Sex: Male
  Weight: 3 kg

DRUGS (1)
  1. KEPPRA [Suspect]
     Active Substance: LEVETIRACETAM
     Indication: PRODUCT USED FOR UNKNOWN INDICATION
     Dosage: 500 MG, 2X/DAY (BID)
     Route: 064
     Dates: start: 2015, end: 20160512

REACTIONS (5)
  - Maternal exposure during pregnancy [Unknown]
  - Respiratory depth decreased [Recovering/Resolving]
  - Agitation neonatal [Recovering/Resolving]
  - Nausea [Recovering/Resolving]
  - Drug withdrawal syndrome neonatal [Recovering/Resolving]

NARRATIVE: CASE EVENT DATE: 2015
